FAERS Safety Report 5496846-1 (Version None)
Quarter: 2007Q4

REPORT INFORMATION
  Report Type: 
  Country: None (occurrence: None)
  Receive Date: 20071025
  Receipt Date: 20070827
  Transmission Date: 20080405
  Serious: No
  Sender: FDA-Public Use
  Company Number: A0676644A

PATIENT
  Age: 65 Year
  Sex: Male

DRUGS (5)
  1. ADVAIR DISKUS 100/50 [Suspect]
     Dosage: 1PUFF TWICE PER DAY
     Route: 055
     Dates: start: 20070301, end: 20070401
  2. PROSTATE MEDICATION [Concomitant]
  3. CHOLESTEROL [Concomitant]
  4. ARTHRITIS MEDICATION [Concomitant]
  5. CLARITIN-D [Concomitant]

REACTIONS (2)
  - DRUG INEFFECTIVE [None]
  - EXPIRED DRUG ADMINISTERED [None]
